FAERS Safety Report 14827300 (Version 2)
Quarter: 2018Q2

REPORT INFORMATION
  Report Type: Spontaneous
  Country: RU (occurrence: RU)
  Receive Date: 20180430
  Receipt Date: 20180501
  Transmission Date: 20180711
  Serious: Yes (Death, Other)
  Sender: FDA-Public Use
  Company Number: RU-ROCHE-2115278

PATIENT
  Age: 67 Year
  Sex: Male

DRUGS (12)
  1. VOLUVEN (RUSSIA) [Concomitant]
  2. MEXIDOL [Concomitant]
  3. EBRANTIL [Concomitant]
     Active Substance: URAPIDIL
  4. ATORVASTATIN [Concomitant]
     Active Substance: ATORVASTATIN
  5. PRESTARIUM [Concomitant]
     Active Substance: PERINDOPRIL
  6. ACTILYSE [Suspect]
     Active Substance: ALTEPLASE
     Indication: ISCHAEMIC STROKE
     Route: 042
     Dates: start: 20180404, end: 20180404
  7. LASIX [Concomitant]
     Active Substance: FUROSEMIDE
  8. OMEZ [Concomitant]
     Active Substance: OMEPRAZOLE
  9. CHOLINE ALFOSCERATE [Concomitant]
     Active Substance: CHOLINE ALFOSCERATE
     Indication: ISCHAEMIC STROKE
  10. CORTICOTROPIN [Concomitant]
     Active Substance: CORTICOTROPIN
  11. DOFAMIN [Concomitant]
  12. AMLODIPINE [Concomitant]
     Active Substance: AMLODIPINE BESYLATE

REACTIONS (4)
  - Cardiac arrest [Fatal]
  - Brain oedema [Fatal]
  - Blood pressure increased [Unknown]
  - Blood urine present [Unknown]

NARRATIVE: CASE EVENT DATE: 20180404
